FAERS Safety Report 15416732 (Version 1)
Quarter: 2018Q3

REPORT INFORMATION
  Report Type: Spontaneous
  Country: US (occurrence: US)
  Receive Date: 20180924
  Receipt Date: 20180924
  Transmission Date: 20181010
  Serious: No
  Sender: FDA-Public Use
  Company Number: US-TEVA-825533ACC

PATIENT
  Age: 67 Year
  Sex: Female

DRUGS (2)
  1. NEFAZODONE [Suspect]
     Active Substance: NEFAZODONE
     Indication: SLEEP DISORDER
  2. NEFAZODONE [Suspect]
     Active Substance: NEFAZODONE
     Indication: DEPRESSION

REACTIONS (2)
  - Product use in unapproved indication [Unknown]
  - Insomnia [Not Recovered/Not Resolved]

NARRATIVE: CASE EVENT DATE: 20171011
